FAERS Safety Report 26214704 (Version 1)
Quarter: 2025Q4

REPORT INFORMATION
  Report Type: Spontaneous
  Country: US (occurrence: US)
  Receive Date: 20251230
  Receipt Date: 20251230
  Transmission Date: 20260117
  Serious: No
  Sender: ASTELLAS
  Company Number: US-ASTELLAS-2025-AER-071419

PATIENT
  Sex: Male

DRUGS (2)
  1. VYLOY [Suspect]
     Active Substance: ZOLBETUXIMAB-CLZB
     Indication: Product used for unknown indication
     Dosage: IV INFUSION
     Route: 042
     Dates: start: 202512, end: 202512
  2. VYLOY [Suspect]
     Active Substance: ZOLBETUXIMAB-CLZB
     Dosage: IV INFUSION
     Route: 042
     Dates: start: 202512

REACTIONS (2)
  - Nausea [Recovered/Resolved]
  - Vomiting [Recovered/Resolved]

NARRATIVE: CASE EVENT DATE: 20251201
